FAERS Safety Report 22373066 (Version 1)
Quarter: 2023Q2

REPORT INFORMATION
  Report Type: Spontaneous
  Country: HR (occurrence: HR)
  Receive Date: 20230526
  Receipt Date: 20230526
  Transmission Date: 20230721
  Serious: Yes (Other)
  Sender: FDA-Public Use
  Company Number: None

PATIENT
  Age: 42 Year
  Sex: Female
  Weight: 65 kg

DRUGS (1)
  1. REBIF [Suspect]
     Active Substance: INTERFERON BETA-1A
     Indication: Relapsing-remitting multiple sclerosis
     Route: 058
     Dates: start: 201811, end: 20230424

REACTIONS (3)
  - Lipodystrophy acquired [Not Recovered/Not Resolved]
  - Application site erythema [Unknown]
  - Application site induration [Unknown]

NARRATIVE: CASE EVENT DATE: 20221001
